FAERS Safety Report 4562496-4 (Version None)
Quarter: 2005Q1

REPORT INFORMATION
  Report Type: 
  Country: None (occurrence: None)
  Receive Date: 20050112
  Receipt Date: 20050112
  Transmission Date: 20050727
  Serious: No
  Sender: FDA-Public Use
  Company Number: None

PATIENT
  Sex: Female

DRUGS (2)
  1. DIPROLENE [Suspect]
     Indication: PSORIASIS
     Dosage: 13 MG OINT
  2. SINEQUAN [Suspect]
     Indication: DEPRESSION
     Dosage: 50 MG DAILY

REACTIONS (2)
  - DRUG EFFECT DECREASED [None]
  - PHARMACEUTICAL PRODUCT COMPLAINT [None]
